FAERS Safety Report 17260580 (Version 2)
Quarter: 2020Q2

REPORT INFORMATION
  Report Type: Spontaneous
  Country: CA (occurrence: CA)
  Receive Date: 20200113
  Receipt Date: 20200511
  Transmission Date: 20200713
  Serious: Yes (Other)
  Sender: FDA-Public Use
  Company Number: CA-DRREDDYS-USA/CAN/20/0118416

PATIENT
  Age: 70 Year
  Sex: Female

DRUGS (2)
  1. ZOLEDRONIC ACID. [Suspect]
     Active Substance: ZOLEDRONIC ACID
     Indication: OSTEOPOROSIS PROPHYLAXIS
     Route: 042
  2. ZOLEDRONIC ACID. [Suspect]
     Active Substance: ZOLEDRONIC ACID
     Dosage: SOLUTION INTRAVENOUS
     Route: 065

REACTIONS (11)
  - Arthralgia [Unknown]
  - Discomfort [Unknown]
  - Fall [Unknown]
  - Pain [Unknown]
  - Back pain [Unknown]
  - Balance disorder [Unknown]
  - Contusion [Unknown]
  - Cataract [Unknown]
  - Off label use [Unknown]
  - Product use in unapproved indication [Unknown]
  - Dizziness [Unknown]
